FAERS Safety Report 21236542 (Version 2)
Quarter: 2022Q4

REPORT INFORMATION
  Report Type: Spontaneous
  Country: US (occurrence: US)
  Receive Date: 20220822
  Receipt Date: 20221021
  Transmission Date: 20230113
  Serious: Yes (Other)
  Sender: FDA-Public Use
  Company Number: US-CELGENE-163-20785-09101548

PATIENT
  Age: 23 Year
  Sex: Female
  Weight: 55.79 kg

DRUGS (30)
  1. THALOMID [Suspect]
     Active Substance: THALIDOMIDE
     Indication: Angiosarcoma
     Dosage: FREQUENCY TEXT: QD X1W, 2QD X1W, ? 50MG/WK TILL 200MG
     Route: 048
     Dates: start: 200705
  2. THALOMID [Suspect]
     Active Substance: THALIDOMIDE
     Dosage: FREQUENCY TEXT: DAILY?200 MG/DAY INCREASING TO 300 MG/DAY
     Route: 048
     Dates: start: 200706
  3. THALOMID [Suspect]
     Active Substance: THALIDOMIDE
     Dosage: FREQUENCY TEXT: 500X7D, ? 50MG A WEEK TILL 650MG
     Route: 048
     Dates: start: 200707, end: 20070802
  4. THALOMID [Suspect]
     Active Substance: THALIDOMIDE
     Dosage: 200 MG DAILY
     Route: 048
     Dates: start: 20070829
  5. THALOMID [Suspect]
     Active Substance: THALIDOMIDE
     Dosage: 300 MG DAILY
     Route: 048
     Dates: start: 200810
  6. THALOMID [Suspect]
     Active Substance: THALIDOMIDE
     Route: 048
     Dates: end: 20090911
  7. LOESTRIN NOS [Suspect]
     Active Substance: ETHINYL ESTRADIOL\NORETHINDRONE ACETATE
     Indication: Contraception
     Route: 065
  8. CELEBREX [Concomitant]
     Active Substance: CELECOXIB
     Indication: Angiosarcoma
     Dosage: FREQUENCY TEXT: BID
     Route: 065
     Dates: start: 200705
  9. CELEBREX [Concomitant]
     Active Substance: CELECOXIB
     Dosage: FREQUENCY TEXT: BID
     Route: 065
     Dates: start: 200905, end: 20091001
  10. CELEBREX [Concomitant]
     Active Substance: CELECOXIB
     Dosage: FREQUENCY TEXT: BID
     Route: 065
     Dates: start: 200708
  11. CELEBREX [Concomitant]
     Active Substance: CELECOXIB
     Route: 065
  12. SENOKOT-S [Concomitant]
     Active Substance: DOCUSATE SODIUM\SENNOSIDES
     Indication: Product used for unknown indication
     Route: 065
  13. AMOXICILLIN [Concomitant]
     Active Substance: AMOXICILLIN
     Indication: Pharyngitis streptococcal
     Dosage: FREQUENCY TEXT: BID
     Route: 065
  14. ASPIRIN [Concomitant]
     Active Substance: ASPIRIN
     Indication: Thrombosis prophylaxis
     Dosage: FREQUENCY TEXT: DAILY
     Route: 065
     Dates: start: 200708
  15. VENTOLIN [Concomitant]
     Active Substance: ALBUTEROL SULFATE
     Indication: Asthma
     Dosage: FREQUENCY TEXT: 1-3 TIMES DAILY
     Route: 065
     Dates: start: 2003
  16. VITAMINS [Concomitant]
     Active Substance: VITAMINS
     Indication: Product used for unknown indication
     Dosage: DAILY DOSE : 1 ?FREQUENCY TEXT: DAILY
     Route: 048
     Dates: start: 20091012
  17. ZOFRAN [Concomitant]
     Active Substance: ONDANSETRON HYDROCHLORIDE
     Indication: Nausea
     Route: 065
     Dates: start: 200910
  18. H1N1 VACCINE [Concomitant]
     Indication: Antiviral prophylaxis
     Route: 065
     Dates: start: 20091110, end: 20091110
  19. ADVAIR HFA [Concomitant]
     Active Substance: FLUTICASONE PROPIONATE\SALMETEROL XINAFOATE
     Indication: Product used for unknown indication
     Route: 065
  20. IRON [Concomitant]
     Active Substance: IRON
     Indication: Product used for unknown indication
     Route: 065
  21. PROMETHAZINE [Concomitant]
     Active Substance: PROMETHAZINE HYDROCHLORIDE
     Indication: Product used for unknown indication
     Route: 065
  22. METOCLOPRAMIDE [Concomitant]
     Active Substance: METOCLOPRAMIDE
     Indication: Product used for unknown indication
     Route: 065
  23. LESSINA [Concomitant]
     Active Substance: ETHINYL ESTRADIOL\LEVONORGESTREL
     Indication: Contraception
     Route: 065
  24. FERROUS SULFATE [Concomitant]
     Active Substance: FERROUS SULFATE
     Indication: Product used for unknown indication
     Route: 065
  25. NAPROSYN [Concomitant]
     Active Substance: NAPROXEN
     Indication: Product used for unknown indication
     Route: 065
  26. IBUPROFEN [Concomitant]
     Active Substance: IBUPROFEN
     Indication: Product used for unknown indication
     Route: 065
  27. ORTHO TRI CYCLEN [Concomitant]
     Active Substance: ETHINYL ESTRADIOL\NORGESTIMATE
     Indication: Product used for unknown indication
     Route: 065
  28. HYDROCODONE [Concomitant]
     Active Substance: HYDROCODONE
     Indication: Product used for unknown indication
     Route: 065
  29. LOW ESTROGEN [Concomitant]
     Indication: Contraception
     Route: 065
  30. PRILOSEC [Concomitant]
     Active Substance: OMEPRAZOLE MAGNESIUM
     Indication: Nausea
     Dosage: FREQUENCY TEXT: AT BEDTIME
     Route: 065
     Dates: start: 200907

REACTIONS (11)
  - Maternal exposure during pregnancy [Recovered/Resolved]
  - Blindness transient [Recovered/Resolved]
  - Treatment noncompliance [Unknown]
  - Mallory-Weiss syndrome [Unknown]
  - Fatigue [Recovering/Resolving]
  - Malignant neoplasm progression [Unknown]
  - Vomiting [Recovered/Resolved]
  - Cough [Unknown]
  - Pregnancy on oral contraceptive [Unknown]
  - Pregnancy with contraceptive device [Unknown]
  - Live birth [Unknown]

NARRATIVE: CASE EVENT DATE: 20070101
